FAERS Safety Report 25256693 (Version 1)
Quarter: 2025Q2

REPORT INFORMATION
  Report Type: Spontaneous
  Country: RU (occurrence: RU)
  Receive Date: 20250430
  Receipt Date: 20250430
  Transmission Date: 20250717
  Serious: Yes (Death, Other)
  Sender: VERITY PHARMACEUTICALS INC.
  Company Number: RU-VER-202500004

PATIENT
  Age: 62 Year
  Sex: Male

DRUGS (3)
  1. TRIPTORELIN PAMOATE [Suspect]
     Active Substance: TRIPTORELIN PAMOATE
     Indication: Prostate cancer metastatic
     Dosage: POWDER AND SOLVENT FOR SUSPENSION FOR INJECTION
     Route: 065
     Dates: start: 202209, end: 202309
  2. TAMOXIFEN [Concomitant]
     Active Substance: TAMOXIFEN
     Indication: Breast cancer
     Route: 065
  3. DOCETAXEL [Suspect]
     Active Substance: DOCETAXEL
     Indication: Prostate cancer metastatic
     Route: 065

REACTIONS (2)
  - Death [Fatal]
  - Malignant neoplasm progression [Not Recovered/Not Resolved]

NARRATIVE: CASE EVENT DATE: 20230925
